FAERS Safety Report 8275348-3 (Version None)
Quarter: 2012Q2

REPORT INFORMATION
  Report Type: 
  Country: None (occurrence: None)
  Receive Date: 20120411
  Receipt Date: 20120406
  Transmission Date: 20120825
  Serious: Yes (Other)
  Sender: FDA-Public Use
  Company Number: US-GILEAD-2012-0052207

PATIENT
  Sex: Male

DRUGS (2)
  1. VIREAD [Suspect]
     Indication: HEPATITIS B
     Dosage: 300 MG, QD
     Route: 048
     Dates: start: 20110701
  2. HEPSERA [Suspect]
     Indication: HEPATITIS B
     Dosage: UNK
     Dates: start: 20070901, end: 20110701

REACTIONS (8)
  - VIROLOGIC FAILURE [None]
  - MUSCULOSKELETAL STIFFNESS [None]
  - BACK PAIN [None]
  - BLOOD CREATINE PHOSPHOKINASE ABNORMAL [None]
  - MYALGIA [None]
  - PAIN IN EXTREMITY [None]
  - DRUG RESISTANCE [None]
  - ABDOMINAL PAIN [None]
